FAERS Safety Report 9265930 (Version 1)
Quarter: 2013Q2

REPORT INFORMATION
  Report Type: Spontaneous
  Country: US (occurrence: US)
  Receive Date: 20130501
  Receipt Date: 20130501
  Transmission Date: 20140414
  Serious: No
  Sender: FDA-Public Use
  Company Number: US-ASTRAZENECA-2013SE27366

PATIENT
  Sex: Female

DRUGS (2)
  1. SYMBICORT [Suspect]
     Dosage: 160 MCG,1 PUFF, DAILY
     Route: 055
  2. SYMBICORT [Suspect]
     Dosage: 80 MCG, 2 PUFFS, BID
     Route: 055

REACTIONS (1)
  - Aphonia [Unknown]
